FAERS Safety Report 12214248 (Version 1)
Quarter: 2016Q1

REPORT INFORMATION
  Report Type: Spontaneous
  Country: US (occurrence: None)
  Receive Date: 20160325
  Receipt Date: 20160325
  Transmission Date: 20160526
  Serious: No
  Sender: FDA-Public Use
  Company Number: None

PATIENT
  Age: 91 Year
  Sex: Female

DRUGS (5)
  1. SOVALDI [Suspect]
     Active Substance: SOFOSBUVIR
     Indication: HEPATITIS C
     Route: 048
     Dates: start: 20160222
  2. RIBAVIRIN. [Suspect]
     Active Substance: RIBAVIRIN
     Indication: HEPATITIS C
     Route: 048
     Dates: start: 20160222
  3. ACIDOPHILUS [Concomitant]
     Active Substance: LACTOBACILLUS ACIDOPHILUS
  4. NATURE -THROI [Concomitant]
  5. FIBER PLUS [Concomitant]

REACTIONS (7)
  - Fatigue [None]
  - Insomnia [None]
  - Headache [None]
  - Contusion [None]
  - White blood cell count decreased [None]
  - Visual impairment [None]
  - Red blood cell count decreased [None]

NARRATIVE: CASE EVENT DATE: 20160222
